FAERS Safety Report 4466359-4 (Version None)
Quarter: 2004Q3

REPORT INFORMATION
  Report Type: 
  Country: None (occurrence: None)
  Receive Date: 20040930
  Receipt Date: 20040917
  Transmission Date: 20050211
  Serious: Yes (Life-Threatening)
  Sender: FDA-Public Use
  Company Number: 0002811

PATIENT
  Age: 2 Year
  Sex: Female
  Weight: 13 kg

DRUGS (7)
  1. INTRALIPID 20% [Suspect]
     Indication: VOLVULUS OF BOWEL
     Dosage: 14 ML/ 1 DAILY INTRAVENOUS INF
     Dates: start: 20021001, end: 20040914
  2. DEXTROSE [Concomitant]
  3. TRAVASOL 10% [Concomitant]
  4. MULTI-VITAMINS [Concomitant]
  5. VITAMIN C [Concomitant]
  6. HEPARIN [Concomitant]
  7. LEVOCARNITINE [Concomitant]

REACTIONS (7)
  - BACTERIAL SEPSIS [None]
  - BILIRUBIN CONJUGATED INCREASED [None]
  - BLOOD BILIRUBIN INCREASED [None]
  - CATHETER SEPSIS [None]
  - FUNGAL SEPSIS [None]
  - HEPATIC FAILURE [None]
  - PANCREATITIS [None]
